FAERS Safety Report 7213477-3 (Version None)
Quarter: 2011Q1

REPORT INFORMATION
  Report Type: 
  Country: None (occurrence: None)
  Receive Date: 20110106
  Receipt Date: 20101223
  Transmission Date: 20110831
  Serious: Yes (Hospitalization)
  Sender: FDA-Public Use
  Company Number: PHHY2010US87828

PATIENT
  Sex: Female

DRUGS (3)
  1. PREDNISONE [Suspect]
     Dosage: 4 MG/KG, QD
  2. REGRANEX [Suspect]
     Indication: HAEMANGIOMA
     Route: 061
  3. PREDNISONE [Suspect]
     Indication: HAEMANGIOMA
     Dosage: 2 MG/KG, QD
     Route: 048

REACTIONS (3)
  - PNEUMOPERITONEUM [None]
  - RESPIRATORY SYNCYTIAL VIRUS INFECTION [None]
  - PNEUMOMEDIASTINUM [None]
